FAERS Safety Report 8852801 (Version 1)
Quarter: 2012Q4

REPORT INFORMATION
  Report Type: 
  Country: DE (occurrence: FR)
  Receive Date: 20121022
  Receipt Date: 20121022
  Transmission Date: 20130627
  Serious: Yes (Hospitalization)
  Sender: FDA-Public Use
  Company Number: FR-BRISTOL-MYERS SQUIBB COMPANY-17043027

PATIENT
  Age: 84 Year
  Sex: Female

DRUGS (6)
  1. GLUCOPHAGE [Suspect]
     Route: 048
     Dates: start: 1990, end: 20120821
  2. PRETERAX [Suspect]
     Route: 048
     Dates: start: 2010, end: 20120822
  3. DIAMICRON [Suspect]
     Dosage: 60mg is the strength.
Dose:1.5DF.
     Dates: start: 1990, end: 20120821
  4. PARIET [Suspect]
     Route: 048
     Dates: start: 1990, end: 20120821
  5. AMLOR [Concomitant]
     Route: 048
     Dates: start: 1990, end: 20120821
  6. FENOFIBRATE [Concomitant]
     Dosage: tab

REACTIONS (2)
  - Hyponatraemia [Unknown]
  - Hypokalaemia [Recovered/Resolved]
